FAERS Safety Report 24456906 (Version 2)
Quarter: 2024Q4

REPORT INFORMATION
  Report Type: Report from Study
  Country: BE (occurrence: BE)
  Receive Date: 20241018
  Receipt Date: 20241126
  Transmission Date: 20250115
  Serious: Yes (Death)
  Sender: CSL BEHRING
  Company Number: BE-BEH-2024182312

PATIENT
  Age: 18 Year
  Sex: Male

DRUGS (2)
  1. HIZENTRA [Suspect]
     Active Substance: HUMAN IMMUNOGLOBULIN G
     Indication: Primary immunodeficiency syndrome
     Dosage: 4G-20ML ONCE PER WEEK
     Route: 058
  2. HIZENTRA [Suspect]
     Active Substance: HUMAN IMMUNOGLOBULIN G
     Indication: Secondary immunodeficiency
     Dosage: UNK
     Route: 065
     Dates: start: 20240909

REACTIONS (1)
  - Death [Fatal]

NARRATIVE: CASE EVENT DATE: 20240911
